FAERS Safety Report 4759922-4 (Version None)
Quarter: 2005Q3

REPORT INFORMATION
  Report Type: 
  Country: None (occurrence: None)
  Receive Date: 20050902
  Receipt Date: 20050823
  Transmission Date: 20060218
  Serious: Yes (Death, Life-Threatening)
  Sender: FDA-Public Use
  Company Number: IT-BRISTOL-MYERS SQUIBB COMPANY-13086301

PATIENT
  Sex: Female

DRUGS (2)
  1. AMOXICILLIN [Suspect]
  2. ALLOPURINOL [Suspect]

REACTIONS (1)
  - TOXIC EPIDERMAL NECROLYSIS [None]
